FAERS Safety Report 7493830-3 (Version None)
Quarter: 2011Q2

REPORT INFORMATION
  Report Type: 
  Country: None (occurrence: None)
  Receive Date: 20110520
  Receipt Date: 20110512
  Transmission Date: 20111010
  Serious: Yes (Hospitalization)
  Sender: FDA-Public Use
  Company Number: CH-SANOFI-AVENTIS-2011SA027061

PATIENT
  Age: 70 Year
  Sex: Male

DRUGS (7)
  1. DEXAMETHASONE [Concomitant]
  2. ZYPREXA [Concomitant]
  3. SPIRICORT [Concomitant]
  4. CYMBALTA [Concomitant]
  5. JEVTANA KIT [Suspect]
     Indication: PROSTATE CANCER
     Dates: start: 20110323, end: 20110323
  6. GRANISETRON HCL [Concomitant]
     Indication: NAUSEA
  7. MST [Concomitant]
     Indication: PAIN

REACTIONS (3)
  - INFECTION [None]
  - CONVULSION [None]
  - PYREXIA [None]
